FAERS Safety Report 7069981-4 (Version None)
Quarter: 2010Q4

REPORT INFORMATION
  Report Type: 
  Country: None (occurrence: None)
  Receive Date: 20101028
  Receipt Date: 20100726
  Transmission Date: 20110411
  Serious: No
  Sender: FDA-Public Use
  Company Number: US-WYE-H16583510

PATIENT
  Age: 72 Year
  Sex: Female
  Weight: 51.76 kg

DRUGS (3)
  1. ADVIL [Suspect]
     Indication: BACK PAIN
     Route: 048
     Dates: start: 20100724, end: 20100725
  2. ENALAPRIL MALEATE [Concomitant]
  3. LIPITOR [Concomitant]

REACTIONS (1)
  - ABDOMINAL PAIN UPPER [None]
